FAERS Safety Report 8842722 (Version 2)
Quarter: 2012Q4

REPORT INFORMATION
  Report Type: 
  Country: US (occurrence: US)
  Receive Date: 20121016
  Receipt Date: 20121023
  Transmission Date: 20130627
  Serious: No
  Sender: FDA-Public Use
  Company Number: US-VERTEX PHARMACEUTICAL INC.-2012-022146

PATIENT
  Age: 41 None
  Sex: Male
  Weight: 54 kg

DRUGS (7)
  1. INCIVEK [Suspect]
     Indication: HEPATITIS C
     Dosage: 750 mg, tid
     Route: 048
     Dates: start: 20120914
  2. RIBAVIRIN [Suspect]
     Indication: HEPATITIS C
     Dosage: 400 mg, bid
     Route: 048
     Dates: start: 20120914
  3. PEGASYS [Suspect]
     Indication: HEPATITIS C
     Dosage: 180 ?g, weekly
     Route: 058
     Dates: start: 20120914
  4. TRAMADOL [Concomitant]
     Indication: PAIN
     Dosage: UNK, prn
     Route: 048
  5. PERCOCET                           /00446701/ [Concomitant]
     Indication: PAIN
     Dosage: UNK, prn
     Route: 048
  6. TYLENOL /00020001/ [Concomitant]
     Indication: PAIN
     Dosage: UNK, prn
     Route: 048
  7. B-50 METABOLISM BOOSTER [Concomitant]
     Indication: MEDICAL DIET
     Dosage: UNK, qd
     Route: 048

REACTIONS (4)
  - Headache [Not Recovered/Not Resolved]
  - Abdominal pain upper [Not Recovered/Not Resolved]
  - Constipation [Not Recovered/Not Resolved]
  - Vomiting [Not Recovered/Not Resolved]
